FAERS Safety Report 9010179 (Version 3)
Quarter: 2013Q2

REPORT INFORMATION
  Report Type: Report from Study
  Country: US (occurrence: US)
  Receive Date: 20130110
  Receipt Date: 20130506
  Transmission Date: 20140414
  Serious: Yes (Death, Hospitalization)
  Sender: FDA-Public Use
  Company Number: PHEH2013US000780

PATIENT
  Age: 88 Year
  Sex: Female

DRUGS (1)
  1. GLEEVEC [Suspect]
     Indication: SOFT TISSUE CANCER
     Dosage: 400 MG, QD
     Route: 048
     Dates: start: 20120321

REACTIONS (9)
  - Death [Fatal]
  - Cerebrovascular accident [Unknown]
  - Abdominal wall cyst [Unknown]
  - Normochromic normocytic anaemia [Unknown]
  - Nausea [Unknown]
  - Periorbital oedema [Unknown]
  - Oedema peripheral [Unknown]
  - Arthralgia [Unknown]
  - Abdominal pain [Unknown]
